FAERS Safety Report 10148992 (Version 2)
Quarter: 2014Q4

REPORT INFORMATION
  Report Type: Spontaneous
  Country: IT (occurrence: IT)
  Receive Date: 20140502
  Receipt Date: 20141120
  Transmission Date: 20150528
  Serious: Yes (Death)
  Sender: FDA-Public Use
  Company Number: IT-BRISTOL-MYERS SQUIBB COMPANY-20688743

PATIENT
  Age: 54 Year
  Sex: Female
  Weight: 75 kg

DRUGS (3)
  1. DELORAZEPAM [Suspect]
     Active Substance: DELORAZEPAM
     Indication: DEPRESSION
     Dosage: ORAL DROPS, SOLUTION?DAILY DOSE: 20 ML BOTTLE LMG/ML
     Route: 048
     Dates: start: 20140407, end: 20140407
  2. SEROQUEL [Suspect]
     Active Substance: QUETIAPINE FUMARATE
     Indication: OBSESSIVE-COMPULSIVE DISORDER
     Dosage: 1DF: 60X150MG TABS.?60X400MG TABS.?60X100MG COATED TABS
     Route: 048
     Dates: start: 20140407, end: 20140407
  3. GLUCOPHAGE [Suspect]
     Active Substance: METFORMIN HYDROCHLORIDE
     Indication: DIABETES MELLITUS
     Dosage: STRENTH: 30*500MG
     Route: 048
     Dates: start: 20140407, end: 20140407

REACTIONS (6)
  - Coma [Fatal]
  - Mydriasis [Fatal]
  - Hypotension [Fatal]
  - Completed suicide [Fatal]
  - Drug abuse [Fatal]
  - Respiratory failure [Fatal]

NARRATIVE: CASE EVENT DATE: 20140407
